FAERS Safety Report 8917114 (Version 1)
Quarter: 2012Q4

REPORT INFORMATION
  Report Type: 
  Country: US (occurrence: US)
  Receive Date: 20121120
  Receipt Date: 20121120
  Transmission Date: 20130627
  Serious: No
  Sender: FDA-Public Use
  Company Number: US-ALLERGAN-1212323US

PATIENT
  Age: 51 Year
  Sex: Male

DRUGS (2)
  1. LASTACAFT [Suspect]
     Indication: ALLERGY NOS
     Dosage: 2 Gtt, bid (2 doses)
     Route: 047
     Dates: start: 20120831, end: 20120831
  2. LOVASTATIN [Concomitant]
     Indication: HYPERCHOLESTEROLEMIA
     Dosage: 1 DF, qd
     Route: 048
     Dates: start: 201206

REACTIONS (11)
  - Conjunctivitis [Recovering/Resolving]
  - Inappropriate schedule of drug administration [Unknown]
  - Off label use [Unknown]
  - Hyperaesthesia [Recovering/Resolving]
  - Instillation site pain [Recovered/Resolved]
  - Instillation site pain [Recovered/Resolved]
  - Eye swelling [Recovering/Resolving]
  - Erythema [Recovering/Resolving]
  - Scleral hyperaemia [Recovering/Resolving]
  - Eye discharge [Recovering/Resolving]
  - Eye discharge [Recovering/Resolving]
